FAERS Safety Report 4306266-0 (Version None)
Quarter: 2004Q1

REPORT INFORMATION
  Report Type: 
  Country: None (occurrence: None)
  Receive Date: 20040225
  Receipt Date: 20030411
  Transmission Date: 20041129
  Serious: No
  Sender: FDA-Public Use
  Company Number: US-BRISTOL-MYERS SQUIBB COMPANY-12246500

PATIENT
  Age: 60 Year
  Sex: Female
  Weight: 100 kg

DRUGS (1)
  1. EXCEDRIN ES TABS [Suspect]
     Indication: HEADACHE
     Dosage: NUMBER OF DOSAGES: ONE EVERY 3 TO 4 HOURS
     Route: 048

REACTIONS (1)
  - DYSPEPSIA [None]
